FAERS Safety Report 21386745 (Version 1)
Quarter: 2022Q3

REPORT INFORMATION
  Report Type: Spontaneous
  Country: DE (occurrence: None)
  Receive Date: 20220928
  Receipt Date: 20220928
  Transmission Date: 20221026
  Serious: Yes (Hospitalization)
  Sender: FDA-Public Use
  Company Number: 2022A322519

PATIENT
  Age: 73 Year
  Sex: Male

DRUGS (10)
  1. TICAGRELOR [Suspect]
     Active Substance: TICAGRELOR
     Dosage: 90 MG, ACTUALLY ONLY UNTIL THE END OF SEPTEMBER ONE TABLET IN THE MORNING AND ONE IN THE EVENING
     Route: 048
  2. ASPIRIN [Suspect]
     Active Substance: ASPIRIN
     Dosage: 100 MG, 1-0-0-0
     Route: 048
  3. AMLODIPINE BESYLATE [Concomitant]
     Active Substance: AMLODIPINE BESYLATE
     Dosage: 5 MG, 1-0-1-0
     Route: 048
  4. METOPROLOL [Concomitant]
     Active Substance: METOPROLOL
     Dosage: 95 MG, 1-0-1-0
     Route: 048
  5. EPLERENONE [Concomitant]
     Active Substance: EPLERENONE
     Dosage: 25 MG, 1-0-0-0
     Route: 048
  6. EMPAGLIFLOZIN [Concomitant]
     Active Substance: EMPAGLIFLOZIN
     Dosage: 10 MG, 1-0-0-0
     Route: 048
  7. NITROLINGUAL ACUTE SPRAY [Concomitant]
     Dosage: AT RR OVER TWO HUNDRED SYSTOLIC ONE TO TWO STROKES
     Route: 060
  8. TORSEMIDE [Concomitant]
     Active Substance: TORSEMIDE
     Dosage: 10 MG, 0.5-0-0-0
     Route: 048
  9. ATORVASTATIN [Concomitant]
     Active Substance: ATORVASTATIN
     Dosage: 10 MG, 0-0-1-0
     Route: 048
  10. ENTRESTO [Concomitant]
     Active Substance: SACUBITRIL\VALSARTAN
     Dosage: 49MG/51MG, 1-0-1-0
     Route: 048

REACTIONS (7)
  - Asthenia [Unknown]
  - Haemoglobin decreased [Unknown]
  - Haematochezia [Unknown]
  - Melaena [Unknown]
  - Upper gastrointestinal haemorrhage [Unknown]
  - Extra dose administered [Unknown]
  - Product administration error [Unknown]

NARRATIVE: CASE EVENT DATE: 20211001
